FAERS Safety Report 13138378 (Version 3)
Quarter: 2017Q1

REPORT INFORMATION
  Report Type: Report from Study
  Country: DE (occurrence: DE)
  Receive Date: 20170123
  Receipt Date: 20170319
  Transmission Date: 20170428
  Serious: Yes (Other)
  Sender: FDA-Public Use
  Company Number: PHHY2017DE006334

PATIENT
  Age: 75 Year
  Sex: Male

DRUGS (2)
  1. COSENTYX [Suspect]
     Active Substance: SECUKINUMAB
     Dosage: 300 MG, QMO
     Route: 058
     Dates: start: 20170111
  2. COSENTYX [Suspect]
     Active Substance: SECUKINUMAB
     Indication: PSORIASIS
     Dosage: 300 MG, QMO
     Route: 058
     Dates: start: 201411

REACTIONS (3)
  - Skin exfoliation [Not Recovered/Not Resolved]
  - Erysipelas [Recovered/Resolved]
  - Erysipelas [Recovered/Resolved]

NARRATIVE: CASE EVENT DATE: 20170110
